FAERS Safety Report 13302019 (Version 1)
Quarter: 2017Q1

REPORT INFORMATION
  Report Type: Spontaneous
  Country: IT (occurrence: IT)
  Receive Date: 20170307
  Receipt Date: 20170307
  Transmission Date: 20170428
  Serious: Yes (Other)
  Sender: FDA-Public Use
  Company Number: IT-PFIZER INC-2017093596

PATIENT
  Sex: Female

DRUGS (6)
  1. OXALIPLATIN. [Suspect]
     Active Substance: OXALIPLATIN
     Indication: COLON CANCER
     Dosage: UNK UNK, CYCLIC (ONCE IN 2 WEEKS)
  2. FOLIC ACID. [Suspect]
     Active Substance: FOLIC ACID
     Indication: COLON CANCER
     Dosage: UNK, CYCLIC (ONCE IN 2 WEEKS)
  3. IRINOTECAN HCL [Suspect]
     Active Substance: IRINOTECAN HYDROCHLORIDE
     Dosage: UNK
  4. ZALTRAP [Suspect]
     Active Substance: ZIV-AFLIBERCEPT
  5. BEVACIZUMAB [Suspect]
     Active Substance: BEVACIZUMAB
     Indication: COLON CANCER
     Dosage: 5 MG/KG, UNK
  6. FLUOROURACIL. [Suspect]
     Active Substance: FLUOROURACIL
     Indication: COLON CANCER
     Dosage: UNK UNK, CYCLIC (ONCE IN 2 WEEKS)

REACTIONS (4)
  - Neoplasm progression [Unknown]
  - Cardiac ventricular thrombosis [Recovering/Resolving]
  - Cardiac myxoma [Recovering/Resolving]
  - Toxicity to various agents [Unknown]
